FAERS Safety Report 23217174 (Version 5)
Quarter: 2024Q3

REPORT INFORMATION
  Report Type: Spontaneous
  Country: AT (occurrence: AT)
  Receive Date: 20231122
  Receipt Date: 20240920
  Transmission Date: 20241017
  Serious: Yes (Congenital Anomaly, Other)
  Sender: TAKEDA
  Company Number: AT-TAKEDA-2023TUS113179

PATIENT
  Sex: Female

DRUGS (7)
  1. ENTYVIO [Suspect]
     Active Substance: VEDOLIZUMAB
     Indication: Crohn^s disease
     Dosage: UNK
     Route: 064
     Dates: start: 20211013
  2. ENTYVIO [Suspect]
     Active Substance: VEDOLIZUMAB
     Indication: Crohn^s disease
     Dosage: 108 MILLIGRAM, Q2WEEKS
     Route: 064
     Dates: end: 20240112
  3. PENTASA [Concomitant]
     Active Substance: MESALAMINE
     Indication: Inflammatory bowel disease
     Dosage: 2 GRAM, QD
     Route: 048
  4. FOLIC ACID [Concomitant]
     Active Substance: FOLIC ACID
     Dosage: 5 GRAM
     Route: 048
     Dates: start: 202310
  5. Oleovit [Concomitant]
     Dosage: 40 GRAM, 1/WEEK
     Dates: start: 202310
  6. VITAMIN D [Concomitant]
     Active Substance: VITAMIN D NOS
     Dosage: UNK
  7. FOLATE SODIUM [Concomitant]
     Active Substance: FOLATE SODIUM
     Dosage: UNK

REACTIONS (3)
  - Fallot^s tetralogy [Unknown]
  - Pulmonary artery atresia [Unknown]
  - Foetal exposure during pregnancy [Unknown]
